FAERS Safety Report 7353413-2 (Version None)
Quarter: 2011Q1

REPORT INFORMATION
  Report Type: 
  Country: None (occurrence: None)
  Receive Date: 20110315
  Receipt Date: 20110304
  Transmission Date: 20110831
  Serious: Yes (Hospitalization)
  Sender: FDA-Public Use
  Company Number: CA-JNJFOC-20110302863

PATIENT
  Age: 80 Year
  Sex: Male
  Weight: 54.43 kg

DRUGS (2)
  1. EXTRA STRENGTH TYLENOL [Suspect]
     Indication: PYREXIA
     Dosage: 4 RAPID RELEASE GELCAPS (2000MG) EVERY 4-6 HOURS
     Route: 048
  2. EXTRA STRENGTH TYLENOL [Suspect]
     Route: 048

REACTIONS (2)
  - PYREXIA [None]
  - OVERDOSE [None]
